FAERS Safety Report 23045522 (Version 1)
Quarter: 2023Q4

REPORT INFORMATION
  Report Type: Report from Study
  Country: US (occurrence: None)
  Receive Date: 20231009
  Receipt Date: 20231009
  Transmission Date: 20240109
  Serious: Yes (Death)
  Sender: FDA-Public Use
  Company Number: 2023A227363

PATIENT
  Sex: Female

DRUGS (11)
  1. TAGRISSO [Suspect]
     Active Substance: OSIMERTINIB
     Indication: Lung neoplasm malignant
     Route: 048
     Dates: start: 20210623
  2. ASPIRIN [Concomitant]
     Active Substance: ASPIRIN
  3. ZINC [Concomitant]
     Active Substance: ZINC
  4. BENADRYL ALLERGY [Concomitant]
     Active Substance: DIPHENHYDRAMINE HYDROCHLORIDE
  5. APPLE CIDER VINEGAR [Concomitant]
     Active Substance: APPLE CIDER VINEGAR
  6. FLAXSEED [Concomitant]
     Active Substance: FLAX SEED
  7. GLUCOSAMINE;CHONDROITIN;MSM [Concomitant]
  8. PRILOSEC OTC [Concomitant]
     Active Substance: OMEPRAZOLE MAGNESIUM
  9. FISH OIL [Concomitant]
     Active Substance: FISH OIL
  10. AMLODIPINE BESILATE/BENAZEPRIL [Concomitant]
  11. VITAMINS [Concomitant]
     Active Substance: VITAMINS

REACTIONS (1)
  - Death [Fatal]
